FAERS Safety Report 11327653 (Version 1)
Quarter: 2015Q3

REPORT INFORMATION
  Report Type: Report from Study
  Country: CA (occurrence: CA)
  Receive Date: 20150731
  Receipt Date: 20150731
  Transmission Date: 20151125
  Serious: Yes (Other)
  Sender: FDA-Public Use
  Company Number: CA-REGENERON PHARMACEUTICALS, INC.-2015-11848

PATIENT
  Age: 69 Year
  Sex: Female

DRUGS (1)
  1. EYLEA [Suspect]
     Active Substance: AFLIBERCEPT
     Indication: NEOVASCULAR AGE-RELATED MACULAR DEGENERATION
     Dosage: UNK
     Route: 031
     Dates: start: 20141112, end: 20150121

REACTIONS (2)
  - Drug ineffective [Unknown]
  - Subretinal fluid [Unknown]

NARRATIVE: CASE EVENT DATE: 20141112
